FAERS Safety Report 4282340-2 (Version None)
Quarter: 2004Q1

REPORT INFORMATION
  Report Type: 
  Country: None (occurrence: None)
  Receive Date: 20040109
  Receipt Date: 20030429
  Transmission Date: 20041129
  Serious: Yes (Other)
  Sender: FDA-Public Use
  Company Number: PHEH2003US03565

PATIENT
  Age: 27 Year
  Sex: Female

DRUGS (2)
  1. METHERGINE [Suspect]
     Indication: MEDICATION ERROR
     Dosage: 0.25 MG, ONCE/SINGLE, SUBCUTANEOUS
     Route: 058
     Dates: start: 20030411, end: 20030411
  2. BRETHINE [Suspect]
     Indication: PREMATURE LABOUR

REACTIONS (3)
  - DRUG EXPOSURE DURING PREGNANCY [None]
  - MEDICATION ERROR [None]
  - UTERINE HYPERTONUS [None]
